FAERS Safety Report 7297516-X (Version None)
Quarter: 2011Q1

REPORT INFORMATION
  Report Type: 
  Country: None (occurrence: None)
  Receive Date: 20110216
  Receipt Date: 20110211
  Transmission Date: 20110831
  Serious: Yes (Other)
  Sender: FDA-Public Use
  Company Number: GB-PFIZER INC-2005105788

PATIENT
  Age: 27 Year
  Sex: Male

DRUGS (13)
  1. VENLAFAXINE HCL [Suspect]
     Indication: PRODUCT USED FOR UNKNOWN INDICATION
     Dosage: UNK
     Route: 065
     Dates: start: 20021201, end: 20030101
  2. ETHANOL [Concomitant]
     Dosage: UNSPECIFIED
     Route: 065
  3. IBUPROFEN [Suspect]
     Dosage: UNSPECIFIED
     Route: 065
     Dates: start: 20020820, end: 20020820
  4. SEROXAT ^SMITH KLINE BEECHAM^ [Suspect]
     Dosage: 50 MG, 1X/DAY
     Dates: start: 20021210
  5. COCAINE [Concomitant]
  6. LITHIUM [Concomitant]
  7. ACETYLSALICYLIC ACID [Suspect]
     Indication: ILL-DEFINED DISORDER
  8. METHYLENEDIOXYMETHAMPHETAMINE [Concomitant]
  9. IBUPROFEN [Suspect]
     Dosage: UNSPECIFIED
     Dates: start: 20020820
  10. CODEINE [Suspect]
     Dosage: UNSPECIFIED
     Dates: start: 20020820
  11. LOFEPRAMINE [Suspect]
     Dosage: UNK
     Route: 065
  12. SEROXAT ^SMITH KLINE BEECHAM^ [Suspect]
     Indication: PHOBIA
     Dosage: 20 MG, 1X/DAY
     Route: 065
     Dates: start: 19990901, end: 20021201
  13. FLUOXETINE [Concomitant]
     Indication: DEPRESSION

REACTIONS (12)
  - SOCIAL PHOBIA [None]
  - CONSTIPATION [None]
  - MULTIPLE DRUG OVERDOSE INTENTIONAL [None]
  - AGGRESSION [None]
  - SEXUAL DYSFUNCTION [None]
  - SUICIDAL IDEATION [None]
  - INTENTIONAL DRUG MISUSE [None]
  - VISION BLURRED [None]
  - DRUG WITHDRAWAL SYNDROME [None]
  - SUICIDE ATTEMPT [None]
  - DRY MOUTH [None]
  - DEPRESSION [None]
